FAERS Safety Report 4560324-4 (Version None)
Quarter: 2005Q1

REPORT INFORMATION
  Report Type: 
  Country: None (occurrence: None)
  Receive Date: 20050125
  Receipt Date: 20050114
  Transmission Date: 20050727
  Serious: Yes (Other)
  Sender: FDA-Public Use
  Company Number: DE-JNJFOC-20050103374

PATIENT

DRUGS (2)
  1. HALDOL DECANOATE [Suspect]
     Indication: SCHIZOPHRENIA
  2. CIATYL [Concomitant]

REACTIONS (1)
  - RHABDOMYOLYSIS [None]
